FAERS Safety Report 23075139 (Version 1)
Quarter: 2023Q4

REPORT INFORMATION
  Report Type: Spontaneous
  Country: TH (occurrence: TH)
  Receive Date: 20231017
  Receipt Date: 20231017
  Transmission Date: 20240109
  Serious: Yes (Hospitalization, Other)
  Sender: FDA-Public Use
  Company Number: TH-PFIZER INC-PV202300168201

PATIENT
  Age: 57 Year
  Sex: Male
  Weight: 46.8 kg

DRUGS (3)
  1. INLYTA [Suspect]
     Active Substance: AXITINIB
     Indication: Renal cell carcinoma
     Dosage: 5 MG TWICE DAILY
     Route: 048
     Dates: start: 20230710
  2. INLYTA [Suspect]
     Active Substance: AXITINIB
     Dosage: 5 MG ONCE DAILY
     Dates: start: 20230828
  3. PEMBROLIZUMAB [Concomitant]
     Active Substance: PEMBROLIZUMAB
     Dosage: 200 MG
     Route: 042

REACTIONS (5)
  - Cardiac failure congestive [Unknown]
  - Ejection fraction decreased [Unknown]
  - Ischaemic stroke [Unknown]
  - Fatigue [Unknown]
  - Decreased appetite [Unknown]

NARRATIVE: CASE EVENT DATE: 20230720
